FAERS Safety Report 24437715 (Version 1)
Quarter: 2024Q4

REPORT INFORMATION
  Report Type: Spontaneous
  Country: FR (occurrence: FR)
  Receive Date: 20241015
  Receipt Date: 20241015
  Transmission Date: 20250115
  Serious: Yes (Hospitalization)
  Sender: BAYER HEALTHCARE PHARMACEUTICALS INC.
  Company Number: None

PATIENT
  Age: 83 Year
  Sex: Male
  Weight: 70 kg

DRUGS (3)
  1. CIPROFLOXACIN [Suspect]
     Active Substance: CIPROFLOXACIN
     Indication: Vascular device infection
     Route: 048
     Dates: start: 20240830, end: 20240924
  2. RIFADIN [Suspect]
     Active Substance: RIFAMPIN
     Indication: Vascular device infection
     Route: 048
     Dates: start: 20240830, end: 20240912
  3. FUROSEMIDE [Suspect]
     Active Substance: FUROSEMIDE
     Indication: Prophylaxis
     Dosage: UNK
     Route: 048
     Dates: start: 20240816, end: 20240926

REACTIONS (3)
  - Vascular purpura [Recovering/Resolving]
  - Thrombocytopenia [Recovering/Resolving]
  - Anaemia [Recovering/Resolving]

NARRATIVE: CASE EVENT DATE: 20240912
